FAERS Safety Report 11277651 (Version 1)
Quarter: 2015Q3

REPORT INFORMATION
  Report Type: Spontaneous
  Country: US (occurrence: US)
  Receive Date: 20150716
  Receipt Date: 20150716
  Transmission Date: 20151125
  Serious: Yes (Death, Other)
  Sender: FDA-Public Use
  Company Number: US-ABBVIE-15P-163-1427749-00

PATIENT
  Sex: Female

DRUGS (1)
  1. LUPRON DEPOT [Suspect]
     Active Substance: LEUPROLIDE ACETATE
     Indication: PRODUCT USED FOR UNKNOWN INDICATION
     Route: 065

REACTIONS (22)
  - Blood disorder [Unknown]
  - Osteopenia [Unknown]
  - Activities of daily living impaired [Unknown]
  - Insomnia [Unknown]
  - Arthralgia [Unknown]
  - Fibromyalgia [Unknown]
  - Death [Fatal]
  - Neoplasm malignant [Unknown]
  - Osteoporosis [Unknown]
  - Hot flush [Unknown]
  - Amnesia [Unknown]
  - Depression [Unknown]
  - Osteoarthritis [Unknown]
  - Intervertebral disc degeneration [Unknown]
  - Haematuria [Unknown]
  - Hypotension [Unknown]
  - Dizziness [Unknown]
  - Vitamin D deficiency [Unknown]
  - Tachycardia [Unknown]
  - Bone pain [Unknown]
  - Autoimmune disorder [Unknown]
  - Anxiety [Unknown]
